FAERS Safety Report 23394616 (Version 2)
Quarter: 2024Q1

REPORT INFORMATION
  Report Type: Other
  Country: CA (occurrence: CA)
  Receive Date: 20240112
  Receipt Date: 20240229
  Transmission Date: 20240410
  Serious: No
  Sender: FDA-Public Use
  Company Number: CA-TOLMAR, INC.-23CA045602

PATIENT
  Sex: Male

DRUGS (3)
  1. ELIGARD [Suspect]
     Active Substance: LEUPROLIDE ACETATE
     Indication: Prostate cancer
     Dosage: 30 MILLIGRAM, Q 4 MONTH
     Route: 058
     Dates: start: 20231017
  2. ELIGARD [Suspect]
     Active Substance: LEUPROLIDE ACETATE
     Dosage: 30 MILLIGRAM, Q 4 MONTH
     Route: 058
     Dates: start: 20240202
  3. ELIGARD [Suspect]
     Active Substance: LEUPROLIDE ACETATE
     Indication: Prostate cancer
     Dosage: 30 MILLIGRAM, Q 4 MONTH
     Route: 058
     Dates: start: 20231017

REACTIONS (4)
  - Abdominal pain upper [Unknown]
  - Hot flush [Not Recovered/Not Resolved]
  - Bone pain [Unknown]
  - Libido decreased [Unknown]
